FAERS Safety Report 9202132 (Version 1)
Quarter: 2013Q1

REPORT INFORMATION
  Report Type: Spontaneous
  Country: US (occurrence: None)
  Receive Date: 20130326
  Receipt Date: 20130326
  Transmission Date: 20140127
  Serious: Yes (Other)
  Sender: FDA-Public Use
  Company Number: 2013SA027060

PATIENT
  Age: 54 Year
  Sex: Female

DRUGS (1)
  1. CAPZASIN HP CREME [Suspect]
     Indication: NECK PAIN
     Dates: end: 20130313

REACTIONS (3)
  - Burning sensation [None]
  - Thermal burn [None]
  - Drug ineffective [None]
